FAERS Safety Report 8818319 (Version 1)
Quarter: 2012Q4

REPORT INFORMATION
  Report Type: 
  Country: US (occurrence: US)
  Receive Date: 20121001
  Receipt Date: 20121001
  Transmission Date: 20130627
  Serious: Yes (Other)
  Sender: FDA-Public Use
  Company Number: US-ASTRAZENECA-2012SE73938

PATIENT
  Sex: Male

DRUGS (1)
  1. CRESTOR [Suspect]
     Route: 048

REACTIONS (9)
  - Blood glucose increased [Unknown]
  - Cardiac failure [Unknown]
  - Thrombosis [Unknown]
  - Gastrooesophageal reflux disease [Unknown]
  - Type 1 diabetes mellitus [Unknown]
  - Nerve injury [Unknown]
  - Neuropathy peripheral [Unknown]
  - Peripheral arterial occlusive disease [Unknown]
  - Unevaluable event [Unknown]
